FAERS Safety Report 23980288 (Version 1)
Quarter: 2024Q2

REPORT INFORMATION
  Report Type: Report from Study
  Country: ES (occurrence: ES)
  Receive Date: 20240617
  Receipt Date: 20240617
  Transmission Date: 20240715
  Serious: Yes (Other)
  Sender: FDA-Public Use
  Company Number: ES-ABBVIE-5800629

PATIENT
  Age: 72 Year
  Sex: Male

DRUGS (1)
  1. UPADACITINIB [Suspect]
     Active Substance: UPADACITINIB
     Indication: Giant cell arteritis
     Route: 048

REACTIONS (2)
  - Glioblastoma multiforme [Unknown]
  - Off label use [Unknown]
